FAERS Safety Report 9263168 (Version 2)
Quarter: 2013Q2

REPORT INFORMATION
  Report Type: Report from Study
  Country: DE (occurrence: DE)
  Receive Date: 20130430
  Receipt Date: 20130531
  Transmission Date: 20140414
  Serious: No
  Sender: FDA-Public Use
  Company Number: DE-ROCHE-1219656

PATIENT
  Sex: Male

DRUGS (1)
  1. VEMURAFENIB [Suspect]
     Indication: MALIGNANT MELANOMA
     Route: 065

REACTIONS (1)
  - Chronic lymphocytic leukaemia [Unknown]
